FAERS Safety Report 14281488 (Version 5)
Quarter: 2021Q4

REPORT INFORMATION
  Report Type: Spontaneous
  Country: JP (occurrence: JP)
  Receive Date: 20171213
  Receipt Date: 20211006
  Transmission Date: 20220303
  Serious: Yes (Other)
  Sender: FDA-Public Use
  Company Number: PHJP2017JP035703

PATIENT
  Age: 85 Year
  Sex: Female

DRUGS (2)
  1. ZOLEDRONIC ACID [Suspect]
     Active Substance: ZOLEDRONIC ACID
     Indication: Metastases to bone
     Dosage: 4 MG, QMO, 52 TIMES
     Route: 041
     Dates: start: 200905, end: 201308
  2. TAMOXIFEN CITRATE [Concomitant]
     Active Substance: TAMOXIFEN CITRATE
     Indication: Metastases to bone
     Dosage: 20 MG
     Route: 048
     Dates: start: 200905

REACTIONS (5)
  - Osteonecrosis of jaw [Recovered/Resolved]
  - Exposed bone in jaw [Recovered/Resolved]
  - Purulent discharge [Recovered/Resolved]
  - Noninfective gingivitis [Unknown]
  - Breath odour [Unknown]

NARRATIVE: CASE EVENT DATE: 20130801
